FAERS Safety Report 7232321 (Version 1)
Quarter: 2020Q3

REPORT INFORMATION
  Report Type: Report from Study
  Country: CA (occurrence: CA)
  Receive Date: 20091229
  Receipt Date: 20091229
  Transmission Date: 20201104
  Serious: Yes (Hospitalization)
  Sender: FDA-Public Use
  Company Number: CA-JNJFOC-20080206968

PATIENT
  Age: 62 Year
  Sex: Male
  Weight: 82.9 kg

DRUGS (18)
  1. CELEXA [Concomitant]
     Active Substance: CITALOPRAM HYDROBROMIDE
     Route: 048
  2. LIPITOR [Concomitant]
     Active Substance: ATORVASTATIN CALCIUM
     Route: 048
  3. CNTO 1275 [Suspect]
     Active Substance: USTEKINUMAB
     Dosage: WEEK 4
     Route: 058
  4. APO?NAPROXEN [Concomitant]
     Indication: PSORIATIC ARTHROPATHY
     Route: 048
  5. CNTO 1275 [Suspect]
     Active Substance: USTEKINUMAB
     Dosage: WEEK 16
     Route: 058
  6. LOSEC [Concomitant]
     Active Substance: OMEPRAZOLE
     Route: 048
  7. SEBCUR T [Concomitant]
     Route: 061
  8. ASAPHEN [Concomitant]
     Route: 048
  9. CNTO 1275 [Suspect]
     Active Substance: USTEKINUMAB
     Dosage: WEEK 88
     Route: 058
  10. CNTO 1275 [Suspect]
     Active Substance: USTEKINUMAB
     Dosage: WEEK 64
     Route: 058
  11. CNTO 1275 [Suspect]
     Active Substance: USTEKINUMAB
     Dosage: WEEK 52
     Route: 058
  12. CNTO 1275 [Suspect]
     Active Substance: USTEKINUMAB
     Dosage: WEEK 96
     Route: 058
  13. CNTO 1275 [Suspect]
     Active Substance: USTEKINUMAB
     Dosage: WEEK 40
     Route: 058
  14. GLUCOPHAGE [Concomitant]
     Active Substance: METFORMIN HYDROCHLORIDE
     Route: 048
  15. CNTO 1275 [Suspect]
     Active Substance: USTEKINUMAB
     Dosage: WEEK 28
     Route: 058
  16. CNTO 1275 [Suspect]
     Active Substance: USTEKINUMAB
     Indication: PSORIASIS
     Dosage: WEEK 0
     Route: 058
  17. CNTO 1275 [Suspect]
     Active Substance: USTEKINUMAB
     Dosage: WEEK 76
     Route: 058
  18. MICARDIS [Concomitant]
     Active Substance: TELMISARTAN
     Route: 048

REACTIONS (1)
  - Chest pain [Not Recovered/Not Resolved]

NARRATIVE: CASE EVENT DATE: 20080105
